FAERS Safety Report 6832408-9 (Version None)
Quarter: 2010Q3

REPORT INFORMATION
  Report Type: 
  Country: None (occurrence: None)
  Receive Date: 20100712
  Receipt Date: 20070310
  Transmission Date: 20110219
  Serious: No
  Sender: FDA-Public Use
  Company Number: US-PFIZER INC-2007020131

PATIENT
  Sex: Female
  Weight: 88.45 kg

DRUGS (4)
  1. CHANTIX [Suspect]
     Indication: SMOKING CESSATION THERAPY
     Route: 048
     Dates: start: 20070224, end: 20070307
  2. PLAVIX [Concomitant]
  3. ALL OTHER THERAPEUTIC PRODUCTS [Concomitant]
  4. CARTIA XT [Concomitant]
     Indication: HYPERTENSION

REACTIONS (2)
  - NAUSEA [None]
  - SOMNOLENCE [None]
